FAERS Safety Report 20613898 (Version 1)
Quarter: 2022Q1

REPORT INFORMATION
  Report Type: Spontaneous
  Country: US (occurrence: US)
  Receive Date: 20220319
  Receipt Date: 20220319
  Transmission Date: 20220424
  Serious: Yes (Death, Other)
  Sender: FDA-Public Use
  Company Number: US-ALVOGEN-2022-ALVOGEN-118948

PATIENT
  Age: 58 Year
  Sex: Male

DRUGS (7)
  1. TRAZODONE [Suspect]
     Active Substance: TRAZODONE HYDROCHLORIDE
     Indication: Drug abuse
  2. GABAPENTIN [Suspect]
     Active Substance: GABAPENTIN
     Indication: Drug abuse
  3. FENTANYL [Suspect]
     Active Substance: FENTANYL
     Indication: Drug abuse
  4. DIAMORPHINE [Suspect]
     Active Substance: DIAMORPHINE
     Indication: Drug abuse
  5. ATORVASTATIN [Suspect]
     Active Substance: ATORVASTATIN
     Indication: Drug abuse
  6. SERTRALINE [Suspect]
     Active Substance: SERTRALINE HYDROCHLORIDE
     Indication: Drug abuse
  7. CANNABIS SATIVA FLOWERING TOP [Suspect]
     Active Substance: CANNABIS SATIVA FLOWERING TOP
     Indication: Drug abuse

REACTIONS (1)
  - Drug abuse [Fatal]
